FAERS Safety Report 5175921-5 (Version None)
Quarter: 2006Q4

REPORT INFORMATION
  Report Type: 
  Country: None (occurrence: None)
  Receive Date: 20061215
  Receipt Date: 20060710
  Transmission Date: 20070319
  Serious: No
  Sender: FDA-Public Use
  Company Number: US-AMGEN-KDL185931

PATIENT
  Sex: Female

DRUGS (2)
  1. ENBREL [Suspect]
     Indication: PSORIATIC ARTHROPATHY
     Route: 058
     Dates: start: 20060515
  2. IMURAN [Concomitant]

REACTIONS (3)
  - NASAL CONGESTION [None]
  - OLIGOMENORRHOEA [None]
  - RHINORRHOEA [None]
